FAERS Safety Report 19241290 (Version 6)
Quarter: 2022Q2

REPORT INFORMATION
  Report Type: Report from Study
  Country: None (occurrence: US)
  Receive Date: 20210511
  Receipt Date: 20220413
  Transmission Date: 20220721
  Serious: Yes (Death, Hospitalization, Other)
  Sender: FDA-Public Use
  Company Number: US-AKCEA THERAPEUTICS, INC.-2021IS001351

PATIENT
  Age: 64 Year
  Sex: Male

DRUGS (2)
  1. TEGSEDI [Suspect]
     Active Substance: INOTERSEN SODIUM
     Indication: Hereditary neuropathic amyloidosis
     Route: 058
     Dates: start: 20190801, end: 202103
  2. DEVICE [Suspect]
     Active Substance: DEVICE

REACTIONS (4)
  - Infection [Fatal]
  - Sepsis [Fatal]
  - Cardiac failure [Fatal]
  - Colitis [Fatal]
